FAERS Safety Report 4368146-4 (Version None)
Quarter: 2004Q2

REPORT INFORMATION
  Report Type: 
  Country: None (occurrence: None)
  Receive Date: 20040527
  Receipt Date: 20040317
  Transmission Date: 20050107
  Serious: No
  Sender: FDA-Public Use
  Company Number: 205336

PATIENT

DRUGS (1)
  1. RAPTIVA [Suspect]
     Indication: PSORIASIS
     Dosage: UNK, 1 WEEK, SUBCUTANEOUS
     Route: 058

REACTIONS (2)
  - CONTUSION [None]
  - WHITE BLOOD CELL COUNT INCREASED [None]
